FAERS Safety Report 22175242 (Version 1)
Quarter: 2023Q2

REPORT INFORMATION
  Report Type: Other
  Country: US (occurrence: None)
  Receive Date: 20230405
  Receipt Date: 20230405
  Transmission Date: 20230722
  Serious: No
  Sender: FDA-Public Use
  Company Number: US-ROCHE-3324464

PATIENT
  Age: 72 Year
  Sex: Female
  Weight: 99.880 kg

DRUGS (3)
  1. OCREVUS [Suspect]
     Active Substance: OCRELIZUMAB
     Indication: Primary progressive multiple sclerosis
     Dosage: ADMINISTER 300 MG IV DAY 0 + 14, THEN 600 MG IV EVERY 6 MONTHS THEREAFTER
     Route: 042
     Dates: start: 20220309
  2. IRBESARTAN [Concomitant]
     Active Substance: IRBESARTAN
  3. CARVEDILOL [Concomitant]
     Active Substance: CARVEDILOL

REACTIONS (2)
  - Headache [Recovered/Resolved]
  - COVID-19 [Recovered/Resolved]

NARRATIVE: CASE EVENT DATE: 20220309
